FAERS Safety Report 4811408-4 (Version None)
Quarter: 2005Q4

REPORT INFORMATION
  Report Type: 
  Country: None (occurrence: None)
  Receive Date: 20051026
  Receipt Date: 20051026
  Transmission Date: 20060501
  Serious: Yes (Hospitalization)
  Sender: FDA-Public Use
  Company Number: None

PATIENT
  Age: 24 Year
  Sex: Female

DRUGS (2)
  1. WELLBUTRIN SR [Suspect]
     Indication: DEPRESSION
     Dosage: BID  150MG  PO
     Route: 048
     Dates: start: 20050724, end: 20050810
  2. TRAMADOL [Concomitant]

REACTIONS (1)
  - GRAND MAL CONVULSION [None]
